FAERS Safety Report 17988285 (Version 1)
Quarter: 2020Q3

REPORT INFORMATION
  Report Type: Spontaneous
  Country: AU (occurrence: AU)
  Receive Date: 20200707
  Receipt Date: 20200707
  Transmission Date: 20201103
  Serious: Yes (Hospitalization)
  Sender: FDA-Public Use
  Company Number: AU-VERTEX PHARMACEUTICALS-2020-014128

PATIENT
  Age: 21 Year
  Sex: Female

DRUGS (13)
  1. LANTUS [Concomitant]
     Active Substance: INSULIN GLARGINE
     Dosage: 5 UNITS NOCTE
  2. BENRALIZUMAB. [Concomitant]
     Active Substance: BENRALIZUMAB
     Dosage: 30 MILLIGRAM, MONTHLY
  3. PANZYTRAT [PANCREATIN] [Concomitant]
     Active Substance: PANCRELIPASE
     Dosage: ABOUT 30 CAPSULES DAILY
  4. NOVORAPID [Concomitant]
     Active Substance: INSULIN ASPART
     Dosage: 4 UNITS WITH MEALS
  5. ULTIBRO BREEZHALER [Concomitant]
     Active Substance: GLYCOPYRRONIUM\INDACATEROL
     Dosage: 1 OD
  6. URSODEOXYCHOLIC ACID [Concomitant]
     Active Substance: URSODIOL
     Dosage: 500 MG, BID
  7. SYMBICORT [Concomitant]
     Active Substance: BUDESONIDE\FORMOTEROL FUMARATE DIHYDRATE
     Dosage: 200/6 2 PUFS BD
  8. URSOFALK [Concomitant]
     Active Substance: URSODIOL
     Indication: CYSTIC FIBROSIS HEPATIC DISEASE
     Dosage: 250 MG, BID
  9. SYMDEKO [Suspect]
     Active Substance: IVACAFTOR\TEZACAFTOR
     Indication: CYSTIC FIBROSIS
     Dosage: (100MG TEZACAFTOR/ 150MG IVACAFTOR AND 150MG IVACAFTOR) , BID
     Route: 048
     Dates: start: 20200221
  10. PULMOZYME [Concomitant]
     Active Substance: DORNASE ALFA
     Dosage: 2.5 MG, BID
  11. SALINE [SODIUM CHLORIDE] [Concomitant]
     Active Substance: SODIUM CHLORIDE
     Dosage: 0.9% 10MLS BD WITH PHYSIO
  12. VENTOLINE [SALBUTAMOL] [Concomitant]
     Active Substance: ALBUTEROL SULFATE
     Dosage: UNK, PRN
  13. VITABDECK [Concomitant]
     Dosage: 1 TABLET, QD

REACTIONS (2)
  - Forced expiratory volume decreased [Not Recovered/Not Resolved]
  - Burkholderia cepacia complex infection [Unknown]

NARRATIVE: CASE EVENT DATE: 202004
